FAERS Safety Report 4919684-4 (Version None)
Quarter: 2006Q1

REPORT INFORMATION
  Report Type: 
  Country: None (occurrence: None)
  Receive Date: 20060221
  Receipt Date: 20060208
  Transmission Date: 20060701
  Serious: Yes (Hospitalization, Other)
  Sender: FDA-Public Use
  Company Number: 2006019764

PATIENT
  Age: 58 Year
  Sex: Male

DRUGS (2)
  1. DIABINESE [Suspect]
     Indication: DIABETES MELLITUS NON-INSULIN-DEPENDENT
     Dosage: 500 MG (250 MG, 2 IN 1 D), ORAL
     Route: 048
     Dates: start: 19941201
  2. CAPTOPRIL [Concomitant]

REACTIONS (4)
  - ACCIDENT [None]
  - DIABETIC FOOT INFECTION [None]
  - INJURY [None]
  - TOE AMPUTATION [None]
